FAERS Safety Report 6098751 (Version 3)
Quarter: 2016Q1

REPORT INFORMATION
  Report Type: Spontaneous
  Country: GB (occurrence: GB)
  Receive Date: 20060804
  Receipt Date: 20160203
  Transmission Date: 20160526
  Serious: Yes (Hospitalization, Congenital Anomaly, Other)
  Sender: FDA-Public Use
  Company Number: GB-BRISTOL-MYERS SQUIBB COMPANY-13343967

PATIENT
  Age: 0 Day
  Sex: Male
  Weight: 1.39 kg

DRUGS (11)
  1. VITAMIN K [Concomitant]
     Active Substance: PHYTONADIONE
     Indication: ALAGILLE SYNDROME
     Dosage: 10 MG, 2 TIMES/WK
     Route: 064
  2. RIFAMPICIN [Concomitant]
     Active Substance: RIFAMPIN
     Indication: HYPERBILIRUBINAEMIA
     Dosage: UNK
     Route: 064
     Dates: start: 20060123
  3. URSODEOXYCHOLIC ACID [Concomitant]
     Active Substance: URSODIOL
     Indication: ALAGILLE SYNDROME
     Dosage: 750 MG, QD
     Route: 064
  4. PIRITON [Concomitant]
     Active Substance: CHLORPHENIRAMINE MALEATE
     Indication: PRODUCT USED FOR UNKNOWN INDICATION
     Dosage: 4 MG, PRN
     Route: 064
     Dates: start: 20060405
  5. QUESTRAN [Suspect]
     Active Substance: CHOLESTYRAMINE
     Indication: PRURITUS
     Dosage: UNK
     Route: 064
     Dates: end: 20060407
  6. PROPRANOLOL [Concomitant]
     Active Substance: PROPRANOLOL\PROPRANOLOL HYDROCHLORIDE
     Indication: PORTAL HYPERTENSION
     Dosage: 40 MG, BID
     Route: 064
     Dates: start: 20060302
  7. MULTIVITAMINS [Concomitant]
     Active Substance: VITAMINS
     Indication: ALAGILLE SYNDROME
     Dosage: UNK
     Route: 064
  8. VITAMIN D [Concomitant]
     Active Substance: CHOLECALCIFEROL
     Indication: ALAGILLE SYNDROME
     Dosage: 2 DF, QD
     Route: 064
  9. LABETALOL [Concomitant]
     Active Substance: LABETALOL\LABETALOL HYDROCHLORIDE
     Indication: PRODUCT USED FOR UNKNOWN INDICATION
     Dosage: 40 MG, BID
     Route: 064
  10. ADCAL [Concomitant]
     Indication: ALAGILLE SYNDROME
     Dosage: 2 DF, QD
     Route: 064
  11. POTASSIUM SLOW RELEASE [Concomitant]
     Indication: HYPOKALAEMIA
     Dosage: 2 DF, TID
     Route: 064
     Dates: start: 20060302

REACTIONS (3)
  - Foetal exposure during pregnancy [Unknown]
  - Acidosis hyperchloraemic [Recovering/Resolving]
  - Premature baby [Unknown]

NARRATIVE: CASE EVENT DATE: 20060407
